FAERS Safety Report 5270072-3 (Version None)
Quarter: 2007Q1

REPORT INFORMATION
  Report Type: 
  Country: None (occurrence: None)
  Receive Date: 20070320
  Receipt Date: 20070315
  Transmission Date: 20070707
  Serious: Yes (Hospitalization)
  Sender: FDA-Public Use
  Company Number: HQWYE942216MAR07

PATIENT
  Age: 84 Year
  Sex: Female

DRUGS (9)
  1. INIPOMP [Suspect]
     Route: 048
     Dates: end: 20061107
  2. LASIX [Suspect]
     Route: 048
     Dates: end: 20061107
  3. DIFFU K [Concomitant]
     Route: 048
  4. SINEMET [Suspect]
     Indication: PARKINSON'S DISEASE
     Route: 048
     Dates: end: 20061107
  5. HEMIGOXINE NATIVELLE [Concomitant]
     Route: 048
  6. PREVISCAN [Concomitant]
     Route: 048
  7. PREVISCAN [Concomitant]
     Route: 048
  8. BI-TILDIEM [Suspect]
     Route: 048
     Dates: end: 20061107
  9. PROZAC [Suspect]
     Route: 048
     Dates: end: 20061107

REACTIONS (4)
  - ABNORMAL BEHAVIOUR [None]
  - FALL [None]
  - ORTHOSTATIC HYPOTENSION [None]
  - RESPIRATORY DEPRESSION [None]
